FAERS Safety Report 11241445 (Version 1)
Quarter: 2015Q3

REPORT INFORMATION
  Report Type: Spontaneous
  Country: GB (occurrence: GB)
  Receive Date: 20150706
  Receipt Date: 20150706
  Transmission Date: 20151125
  Serious: Yes (Death, Hospitalization, Other)
  Sender: FDA-Public Use
  Company Number: PHHY2015GB076915

PATIENT
  Age: 58 Year
  Sex: Female

DRUGS (2)
  1. BISOPROLOL [Suspect]
     Active Substance: BISOPROLOL
     Dosage: 2.5 MG, UNK
     Route: 065
     Dates: start: 2010
  2. BISOPROLOL [Suspect]
     Active Substance: BISOPROLOL
     Indication: CARDIAC MURMUR
     Dosage: 10 MG, UNK
     Route: 065
     Dates: start: 2010

REACTIONS (9)
  - Pneumonia [Fatal]
  - Fall [Unknown]
  - Liver abscess [Fatal]
  - Dizziness [Unknown]
  - Sepsis [Fatal]
  - Metastatic neoplasm [Fatal]
  - Atrial fibrillation [Fatal]
  - Overdose [Unknown]
  - Hand fracture [Unknown]
